FAERS Safety Report 6907949-6 (Version None)
Quarter: 2010Q3

REPORT INFORMATION
  Report Type: 
  Country: None (occurrence: None)
  Receive Date: 20100805
  Receipt Date: 20100722
  Transmission Date: 20110219
  Serious: Yes (Death)
  Sender: FDA-Public Use
  Company Number: AU-RANBAXY-2010RR-36634

PATIENT
  Age: 47 Year
  Sex: Female

DRUGS (5)
  1. VENLAFAXINE [Suspect]
  2. FLUOXETINE [Suspect]
  3. AMITRIPTYLINE HYDROCHLORIDE [Suspect]
  4. DIAZEPAM [Suspect]
  5. 7-AMINONITRAZEPAM [Suspect]

REACTIONS (3)
  - DRUG INTERACTION [None]
  - DRUG TOXICITY [None]
  - SEROTONIN SYNDROME [None]
